FAERS Safety Report 14418251 (Version 1)
Quarter: 2018Q1

REPORT INFORMATION
  Report Type: Other
  Country: US (occurrence: US)
  Receive Date: 20180122
  Receipt Date: 20180122
  Transmission Date: 20180509
  Serious: No
  Sender: FDA-Public Use
  Company Number: US-INTERCEPT-PMOCA2017001206

PATIENT

DRUGS (1)
  1. OCALIVA [Suspect]
     Active Substance: OBETICHOLIC ACID
     Indication: COLITIS
     Dosage: 5 MG, QD
     Route: 048
     Dates: start: 201607

REACTIONS (7)
  - Skin injury [Unknown]
  - Pain of skin [Unknown]
  - Nausea [Recovered/Resolved]
  - Dry mouth [Not Recovered/Not Resolved]
  - Skin discolouration [Unknown]
  - Pruritus [Not Recovered/Not Resolved]
  - Fatigue [Not Recovered/Not Resolved]
